FAERS Safety Report 10388230 (Version 1)
Quarter: 2014Q3

REPORT INFORMATION
  Report Type: Spontaneous
  Country: US (occurrence: US)
  Receive Date: 20140815
  Receipt Date: 20140815
  Transmission Date: 20150326
  Serious: Yes (Other)
  Sender: FDA-Public Use
  Company Number: ALCN2014US004516

PATIENT
  Age: 77 Year
  Sex: Female

DRUGS (2)
  1. TRAVATAN Z [Suspect]
     Active Substance: TRAVOPROST
     Route: 047
  2. WATER PILLS [Concomitant]
     Dosage: UNK
     Route: 048

REACTIONS (4)
  - Head injury [Unknown]
  - Haemorrhage [Unknown]
  - Blood sodium decreased [Unknown]
  - Fall [Recovered/Resolved]

NARRATIVE: CASE EVENT DATE: 20140806
